FAERS Safety Report 8303475 (Version 5)
Quarter: 2012Q4

REPORT INFORMATION
  Report Type: 
  Country: CA (occurrence: CA)
  Receive Date: 20111220
  Receipt Date: 20121029
  Transmission Date: 20130627
  Serious: Yes (Other)
  Sender: FDA-Public Use
  Company Number: PHHY2011CA45857

PATIENT
  Sex: Female

DRUGS (3)
  1. SANDOSTATIN LAR [Suspect]
     Indication: ACROMEGALY
     Dosage: 20 mg, every 4 weeks
     Route: 030
     Dates: start: 20080605
  2. SANDOSTATIN LAR [Suspect]
     Dosage: 30 mg, every 4 weeks
     Route: 030
     Dates: start: 201111
  3. SANDOSTATIN LAR [Suspect]
     Dosage: 20 mg, every 4 weeks
     Route: 030
     Dates: start: 20080605

REACTIONS (11)
  - Hypoaesthesia [Unknown]
  - Amenorrhoea [Unknown]
  - Hepatic pain [Unknown]
  - Decreased appetite [Unknown]
  - Fatigue [Unknown]
  - Abdominal discomfort [Unknown]
  - Nausea [Unknown]
  - Injection site pain [Unknown]
  - Radiation associated pain [Unknown]
  - Abdominal pain upper [Unknown]
  - Diarrhoea [Unknown]
